FAERS Safety Report 15615601 (Version 1)
Quarter: 2018Q4

REPORT INFORMATION
  Report Type: Spontaneous
  Country: US (occurrence: US)
  Receive Date: 20181114
  Receipt Date: 20181114
  Transmission Date: 20190205
  Serious: No
  Sender: FDA-Public Use
  Company Number: US-TEVA-815509ACC

PATIENT
  Sex: Female
  Weight: 50 kg

DRUGS (1)
  1. ESTRADIOL. [Suspect]
     Active Substance: ESTRADIOL
     Indication: HORMONE REPLACEMENT THERAPY
     Dates: start: 20171002

REACTIONS (4)
  - Heart rate increased [Unknown]
  - Wrong technique in product usage process [Unknown]
  - Vulvovaginal discomfort [Unknown]
  - Insomnia [Unknown]

NARRATIVE: CASE EVENT DATE: 20171002
